FAERS Safety Report 9370135 (Version 1)
Quarter: 2013Q2

REPORT INFORMATION
  Report Type: Spontaneous
  Country: US (occurrence: None)
  Receive Date: 20130621
  Receipt Date: 20130621
  Transmission Date: 20140414
  Serious: Yes (Hospitalization)
  Sender: FDA-Public Use
  Company Number: US-023496

PATIENT
  Age: 83 Year
  Sex: Male

DRUGS (2)
  1. CHLORAMBUCIL (CHLORAMBUCIL) (UNKNOWN) [Suspect]
     Indication: CHRONIC LYMPHOCYTIC LEUKAEMIA
  2. PREDNISONE [Concomitant]

REACTIONS (24)
  - Tumour lysis syndrome [None]
  - Muscular weakness [None]
  - Confusional state [None]
  - Dysuria [None]
  - Dysstasia [None]
  - Dyspnoea [None]
  - Condition aggravated [None]
  - Decreased appetite [None]
  - Lymphadenopathy [None]
  - Metabolic acidosis [None]
  - Cardiomegaly [None]
  - Lung disorder [None]
  - Cerebral atrophy [None]
  - Cerebral ischaemia [None]
  - Hydronephrosis [None]
  - Renal failure acute [None]
  - Hyperkalaemia [None]
  - Hyperphosphataemia [None]
  - Hypocalcaemia [None]
  - Hyperuricaemia [None]
  - Asthenia [None]
  - Retroperitoneal lymphadenopathy [None]
  - Splenomegaly [None]
  - Hyporeflexia [None]
